FAERS Safety Report 13583917 (Version 4)
Quarter: 2017Q4

REPORT INFORMATION
  Report Type: Report from Study
  Country: JP (occurrence: JP)
  Receive Date: 20170526
  Receipt Date: 20171005
  Transmission Date: 20180320
  Serious: Yes (Death, Life-Threatening)
  Sender: FDA-Public Use
  Company Number: JP-AMGEN-JPNCT2017080279

PATIENT
  Age: 85 Year
  Sex: Female
  Weight: 50 kg

DRUGS (54)
  1. FLUITRAN [Suspect]
     Active Substance: TRICHLORMETHIAZIDE
     Dosage: 1 MG, UNK
     Route: 050
     Dates: start: 20170315, end: 20170329
  2. LASIX [Suspect]
     Active Substance: FUROSEMIDE
     Dosage: 20 MG, UNK
     Route: 042
     Dates: start: 20170424, end: 20170428
  3. YD SOLITA T NO.3 [Concomitant]
     Dosage: 500 ML, UNK
     Route: 041
     Dates: start: 20170325, end: 20170327
  4. GLUCOSE [Concomitant]
     Active Substance: DEXTROSE
     Dosage: 100 ML, UNK
     Route: 042
     Dates: start: 20170420, end: 20170426
  5. ISOTONIC SODIUM CHLORIDE SOLUTION [Concomitant]
     Active Substance: SODIUM CHLORIDE
     Dosage: 20 ML, UNK
     Route: 042
     Dates: start: 20170427, end: 20170427
  6. SULBACILLIN [Concomitant]
     Active Substance: AMPICILLIN SODIUM\SULBACTAM SODIUM
     Dosage: 6 G, UNK
     Route: 042
     Dates: start: 20170317, end: 20170326
  7. ALBUMIN [Concomitant]
     Active Substance: ALBUMIN HUMAN
     Dosage: 50 ML, UNK
     Route: 042
     Dates: start: 20170510, end: 20170512
  8. XARELTO [Suspect]
     Active Substance: RIVAROXABAN
     Indication: ATRIAL FIBRILLATION
     Dosage: 10 MG, UNK
     Route: 050
     Dates: end: 20170513
  9. FLUITRAN [Suspect]
     Active Substance: TRICHLORMETHIAZIDE
     Dosage: 2 MG, UNK
     Route: 050
     Dates: start: 20170330, end: 20170513
  10. YD SOLITA T NO.3 [Concomitant]
     Indication: DEHYDRATION
     Dosage: 500 ML, UNK
     Route: 041
     Dates: end: 20170308
  11. GLUCOSE [Concomitant]
     Active Substance: DEXTROSE
     Dosage: 1000 ML, UNK
     Route: 042
     Dates: start: 20170304, end: 20170305
  12. GLUCOSE [Concomitant]
     Active Substance: DEXTROSE
     Dosage: 500 ML, UNK
     Route: 042
     Dates: start: 20170411, end: 20170417
  13. MAGMITT [Concomitant]
     Active Substance: MAGNESIUM OXIDE
     Indication: CONSTIPATION
     Dosage: 990 MG, UNK
     Route: 050
     Dates: start: 20170302, end: 20170308
  14. KCL CORRECTIVE [Concomitant]
     Dosage: 20 ML, UNK
     Route: 065
     Dates: start: 20170411, end: 20170412
  15. LANSOPRAZOLE. [Concomitant]
     Active Substance: LANSOPRAZOLE
     Indication: ATRIAL FIBRILLATION
     Dosage: 15 MG, UNK
     Route: 050
     Dates: end: 20170513
  16. ISOTONIC SODIUM CHLORIDE SOLUTION [Concomitant]
     Active Substance: SODIUM CHLORIDE
     Dosage: 20 ML, UNK
     Route: 042
     Dates: start: 20170511, end: 20170511
  17. CEFTRIAXONE NA [Concomitant]
     Active Substance: CEFTRIAXONE
     Dosage: 1 G, UNK
     Route: 042
     Dates: start: 20170420, end: 20170426
  18. CINACALCET HCL [Suspect]
     Active Substance: CINACALCET HYDROCHLORIDE
     Dosage: 50 MG, BID
     Route: 048
     Dates: start: 20170314, end: 20170402
  19. YD SOLITA T NO.3 [Concomitant]
     Dosage: 200 ML, UNK
     Route: 041
     Dates: start: 20170317, end: 20170324
  20. GLUCOSE [Concomitant]
     Active Substance: DEXTROSE
     Indication: DEHYDRATION
     Dosage: 500 ML, UNK
     Route: 042
     Dates: start: 20170301, end: 20170303
  21. GLUCOSE [Concomitant]
     Active Substance: DEXTROSE
     Dosage: 1000 ML, UNK
     Route: 042
     Dates: start: 20170406, end: 20170410
  22. HEMOPORISON [Concomitant]
     Indication: HAEMORRHOIDS
     Dosage: 4 G, UNK
     Route: 061
     Dates: start: 20170302, end: 20170331
  23. ZINC OXIDE SIMPLE OINTMENT [Concomitant]
     Active Substance: ZINC OXIDE
     Dosage: UNK
     Route: 061
     Dates: start: 20170505, end: 20170509
  24. VEEN D [Concomitant]
     Active Substance: CALCIUM CHLORIDE\DEXTROSE\POTASSIUM CHLORIDE\SODIUM ACETATE\SODIUM CHLORIDE
     Dosage: 500 ML, UNK
     Route: 041
     Dates: start: 20170317, end: 20170321
  25. ALBUMIN [Concomitant]
     Active Substance: ALBUMIN HUMAN
     Indication: HYPOALBUMINAEMIA
     Dosage: 50 ML, UNK
     Route: 042
     Dates: start: 20170317, end: 20170319
  26. NICARDIPINE HYDROCHLORIDE. [Concomitant]
     Active Substance: NICARDIPINE HYDROCHLORIDE
     Dosage: 2 ML, UNK
     Route: 042
     Dates: start: 20170402, end: 20170402
  27. LASIX [Suspect]
     Active Substance: FUROSEMIDE
     Indication: PRODUCT USED FOR UNKNOWN INDICATION
     Dosage: 20 MG, UNK
     Route: 042
     Dates: start: 20170317, end: 20170328
  28. LOSARTAN POTASSIUM. [Concomitant]
     Active Substance: LOSARTAN POTASSIUM
     Indication: HYPERTENSION
     Dosage: 50 MG, UNK
     Route: 050
     Dates: start: 20170301, end: 20170302
  29. ASPARA POTASSIUM [Concomitant]
     Active Substance: POTASSIUM ASPARTATE
     Dosage: 20 ML, UNK
     Route: 041
     Dates: start: 20170302, end: 20170303
  30. ASPARA POTASSIUM [Concomitant]
     Active Substance: POTASSIUM ASPARTATE
     Dosage: 5 G, UNK
     Route: 050
     Dates: start: 20170417, end: 20170510
  31. ISOTONIC SODIUM CHLORIDE SOLUTION [Concomitant]
     Active Substance: SODIUM CHLORIDE
     Indication: DEHYDRATION
     Dosage: 20 ML, UNK
     Route: 042
     Dates: start: 20170302, end: 20170302
  32. XYLOCAINE [Concomitant]
     Active Substance: LIDOCAINE HYDROCHLORIDE
     Dosage: 5 ML, UNK
     Route: 042
     Dates: start: 20170321, end: 20170321
  33. CINACALCET HCL [Suspect]
     Active Substance: CINACALCET HYDROCHLORIDE
     Indication: HYPERPARATHYROIDISM PRIMARY
     Dosage: 25 MG, BID
     Route: 048
     Dates: start: 20170301, end: 20170313
  34. CINACALCET HCL [Suspect]
     Active Substance: CINACALCET HYDROCHLORIDE
     Dosage: 75 MG, BID
     Route: 048
     Dates: start: 20170403, end: 20170424
  35. CINACALCET HCL [Suspect]
     Active Substance: CINACALCET HYDROCHLORIDE
     Dosage: 75 MG, TID
     Route: 048
     Dates: start: 20170425, end: 20170513
  36. LASIX [Suspect]
     Active Substance: FUROSEMIDE
     Dosage: 20 MG, UNK
     Route: 042
     Dates: start: 20170510, end: 20170513
  37. FEBURIC [Concomitant]
     Active Substance: FEBUXOSTAT
     Indication: HYPERURICAEMIA
     Dosage: 10 MG, UNK
     Route: 050
     Dates: end: 20170513
  38. ISOTONIC SODIUM CHLORIDE SOLUTION [Concomitant]
     Active Substance: SODIUM CHLORIDE
     Dosage: 20 ML, UNK
     Route: 042
     Dates: start: 20170306, end: 20170306
  39. ISOTONIC SODIUM CHLORIDE SOLUTION [Concomitant]
     Active Substance: SODIUM CHLORIDE
     Dosage: 20 ML, UNK
     Route: 042
     Dates: start: 20170410, end: 20170410
  40. BFLUID [Concomitant]
     Active Substance: AMINO ACIDS\DEXTROSE\ELECTROLYTES NOS\VITAMINS
     Dosage: 500 ML, UNK
     Route: 041
     Dates: start: 20170317, end: 20170328
  41. NICARDIPINE HYDROCHLORIDE. [Concomitant]
     Active Substance: NICARDIPINE HYDROCHLORIDE
     Dosage: 4 ML, UNK
     Route: 042
     Dates: start: 20170401, end: 20170401
  42. FUROSEMIDE. [Concomitant]
     Active Substance: FUROSEMIDE
     Dosage: 20 MG, UNK
     Route: 048
     Dates: start: 20170501, end: 20170513
  43. HOKUNALIN [Concomitant]
     Active Substance: TULOBUTEROL
     Dosage: 1 MG, UNK
     Route: 062
     Dates: start: 20170508, end: 20170513
  44. LASIX [Suspect]
     Active Substance: FUROSEMIDE
     Dosage: 40 MG, UNK
     Route: 042
     Dates: start: 20170421, end: 20170423
  45. ZINC OXIDE SIMPLE OINTMENT [Concomitant]
     Active Substance: ZINC OXIDE
     Dosage: UNK
     Route: 061
     Dates: start: 20170304, end: 20170313
  46. NICARDIPINE HYDROCHLORIDE. [Concomitant]
     Active Substance: NICARDIPINE HYDROCHLORIDE
     Indication: HYPERTENSION
     Dosage: 2 ML, UNK
     Route: 042
     Dates: start: 20170319, end: 20170320
  47. KCL CORRECTIVE [Concomitant]
     Dosage: 40 ML, UNK
     Route: 065
     Dates: start: 20170406, end: 20170410
  48. FLUITRAN [Suspect]
     Active Substance: TRICHLORMETHIAZIDE
     Indication: HYPERTENSION
     Dosage: 1 MG, UNK
     Route: 050
     Dates: start: 20170301, end: 20170302
  49. ASPARA POTASSIUM [Concomitant]
     Active Substance: POTASSIUM ASPARTATE
     Dosage: 8 G, UNK
     Route: 050
     Dates: start: 20170511, end: 20170513
  50. ISOTONIC SODIUM CHLORIDE SOLUTION [Concomitant]
     Active Substance: SODIUM CHLORIDE
     Dosage: 200 ML, UNK
     Route: 042
     Dates: start: 20170317, end: 20170326
  51. ISOTONIC SODIUM CHLORIDE SOLUTION [Concomitant]
     Active Substance: SODIUM CHLORIDE
     Dosage: 20 ML, UNK
     Route: 042
     Dates: start: 20170417, end: 20170417
  52. PICOSULFATE NA [Concomitant]
     Active Substance: SODIUM PICOSULFATE
     Indication: CONSTIPATION
     Dosage: UNK
     Route: 050
     Dates: start: 20170313, end: 20170513
  53. KCL CORRECTIVE [Concomitant]
     Dosage: 20 ML, UNK
     Route: 065
     Dates: start: 20170322, end: 20170328
  54. CRAVIT [Concomitant]
     Active Substance: LEVOFLOXACIN
     Dosage: 500 MG, UNK
     Route: 048
     Dates: start: 20170508, end: 20170513

REACTIONS (17)
  - Arrhythmia [Not Recovered/Not Resolved]
  - Cardiac failure acute [Recovering/Resolving]
  - Cardiac failure acute [Not Recovered/Not Resolved]
  - Urinary tract infection [Not Recovered/Not Resolved]
  - Hypokalaemia [Recovering/Resolving]
  - Hypokalaemia [Not Recovered/Not Resolved]
  - Anaemia [Not Recovered/Not Resolved]
  - Pneumonia [Recovering/Resolving]
  - Anaemia [Recovering/Resolving]
  - Dehydration [Not Recovered/Not Resolved]
  - Hypokalaemia [Recovering/Resolving]
  - Pneumonia [Not Recovered/Not Resolved]
  - Dehydration [Recovering/Resolving]
  - Embolic stroke [Fatal]
  - Dehydration [Recovering/Resolving]
  - Dermatitis [Recovering/Resolving]
  - Dermatitis [Recovering/Resolving]

NARRATIVE: CASE EVENT DATE: 20170302
